FAERS Safety Report 6490989-1 (Version None)
Quarter: 2009Q4

REPORT INFORMATION
  Report Type: 
  Country: None (occurrence: None)
  Receive Date: 20091207
  Receipt Date: 20091124
  Transmission Date: 20100525
  Serious: Yes (Hospitalization)
  Sender: FDA-Public Use
  Company Number: 8055352

PATIENT

DRUGS (1)
  1. KEPPRA [Suspect]

REACTIONS (1)
  - MENTAL DISORDER [None]
